FAERS Safety Report 8587706-8 (Version None)
Quarter: 2012Q3

REPORT INFORMATION
  Report Type: 
  Country: None (occurrence: None)
  Receive Date: 20120813
  Receipt Date: 20120807
  Transmission Date: 20120928
  Serious: Yes (Disabling)
  Sender: FDA-Public Use
  Company Number: CA-AMGEN-CANSP2012049541

PATIENT
  Age: 48 Year
  Sex: Female

DRUGS (7)
  1. HUMIRA [Suspect]
     Dosage: UNK
     Route: 058
  2. ENBREL [Suspect]
     Indication: PRODUCT USED FOR UNKNOWN INDICATION
     Dosage: UNK
     Route: 058
  3. RAMIPRIL [Concomitant]
     Dosage: UNK
  4. METHOTREXATE [Concomitant]
     Dosage: UNK
  5. MELOXICAM [Concomitant]
     Dosage: UNK
  6. FOLIC ACID [Concomitant]
     Dosage: UNK
  7. LOSEC                              /00661201/ [Concomitant]
     Dosage: UNK

REACTIONS (7)
  - DRUG HYPERSENSITIVITY [None]
  - RASH MACULOVESICULAR [None]
  - SINUSITIS [None]
  - URTICARIA [None]
  - RASH PUSTULAR [None]
  - RASH ERYTHEMATOUS [None]
  - RASH PRURITIC [None]
